FAERS Safety Report 22244232 (Version 1)
Quarter: 2023Q2

REPORT INFORMATION
  Report Type: Spontaneous
  Country: CA (occurrence: CA)
  Receive Date: 20230424
  Receipt Date: 20230424
  Transmission Date: 20230721
  Serious: Yes (Other)
  Sender: FDA-Public Use
  Company Number: CA-AUROBINDO-AUR-APL-2023-031955

PATIENT
  Age: 52 Year
  Sex: Female

DRUGS (15)
  1. CIPROFLOXACIN [Suspect]
     Active Substance: CIPROFLOXACIN
     Indication: Product used for unknown indication
     Dosage: UNK
     Route: 065
  2. METRONIDAZOLE [Suspect]
     Active Substance: METRONIDAZOLE
     Indication: Product used for unknown indication
     Dosage: UNK
     Route: 065
  3. OCTREOTIDE [Suspect]
     Active Substance: OCTREOTIDE
     Indication: Neuroendocrine carcinoma metastatic
     Dosage: 50 MCG
     Route: 058
  4. OCTREOTIDE [Suspect]
     Active Substance: OCTREOTIDE
     Dosage: 30 MCG, EVERY MONTH
     Route: 030
  5. OCTREOTIDE [Suspect]
     Active Substance: OCTREOTIDE
     Dosage: 30 MCG
     Route: 030
  6. OCTREOTIDE [Suspect]
     Active Substance: OCTREOTIDE
     Dosage: 200 MCG
     Route: 058
  7. PRIMOVIST [Suspect]
     Active Substance: GADOXETATE DISODIUM
     Indication: Product used for unknown indication
     Dosage: UNK
     Route: 065
  8. PRIMOVIST [Suspect]
     Active Substance: GADOXETATE DISODIUM
     Indication: Product used for unknown indication
     Dosage: UNK
     Route: 065
  9. SANDOSTATIN [Suspect]
     Active Substance: OCTREOTIDE ACETATE
     Indication: Neuroendocrine carcinoma metastatic
     Dosage: 30 MILLIGRAM, EVERY MONTH
     Route: 030
  10. SANDOSTATIN [Suspect]
     Active Substance: OCTREOTIDE ACETATE
     Indication: Neuroendocrine carcinoma metastatic
     Dosage: 30 MILLIGRAM, 1 EVERY 3 WEEKS
     Route: 030
  11. SANDOSTATIN [Suspect]
     Active Substance: OCTREOTIDE ACETATE
     Dosage: 200 MILLIGRAM
     Route: 058
  12. SANDOSTATIN [Suspect]
     Active Substance: OCTREOTIDE ACETATE
     Dosage: 50 MILLIGRAM
     Route: 058
  13. SANDOSTATIN [Suspect]
     Active Substance: OCTREOTIDE ACETATE
     Dosage: 30 MILLIGRAM
     Route: 030
  14. SANDOSTATIN [Suspect]
     Active Substance: OCTREOTIDE ACETATE
     Dosage: 200 MILLIGRAM, 3 TIMES A DAY
     Route: 058
  15. COLACE [Concomitant]
     Active Substance: DOCUSATE SODIUM
     Indication: Product used for unknown indication
     Dosage: UNK
     Route: 065

REACTIONS (23)
  - Abdominal distension [Recovered/Resolved]
  - Abdominal pain [Recovered/Resolved]
  - Anxiety [Recovered/Resolved]
  - Back pain [Recovered/Resolved]
  - Blood pressure increased [Recovered/Resolved]
  - Bone pain [Recovered/Resolved]
  - Contusion [Recovered/Resolved]
  - Cough [Recovered/Resolved]
  - Drug hypersensitivity [Recovered/Resolved]
  - Epistaxis [Recovered/Resolved]
  - Fatigue [Recovered/Resolved]
  - Frustration tolerance decreased [Recovered/Resolved]
  - Haemorrhage [Recovered/Resolved]
  - Heart rate decreased [Recovered/Resolved]
  - Hypotension [Recovered/Resolved]
  - Injection site pain [Recovered/Resolved]
  - Injection site swelling [Recovered/Resolved]
  - Limb discomfort [Recovered/Resolved]
  - Nasal congestion [Recovered/Resolved]
  - Nasopharyngitis [Recovered/Resolved]
  - Rash papular [Recovered/Resolved]
  - Rubber sensitivity [Recovered/Resolved]
  - Inappropriate schedule of product administration [Recovered/Resolved]
